FAERS Safety Report 12725329 (Version 1)
Quarter: 2016Q3

REPORT INFORMATION
  Report Type: Spontaneous
  Country: HR (occurrence: HR)
  Receive Date: 20160908
  Receipt Date: 20160908
  Transmission Date: 20161109
  Serious: Yes (Hospitalization)
  Sender: FDA-Public Use
  Company Number: HR-ELI_LILLY_AND_COMPANY-HR201609001174

PATIENT
  Age: 53 Year
  Sex: Female
  Weight: 63 kg

DRUGS (4)
  1. FOLFIRI [Concomitant]
     Active Substance: FLUOROURACIL\IRINOTECAN\LEUCOVORIN
     Indication: COLON CANCER
  2. DEXAMETHASON KRKA                  /00016001/ [Concomitant]
     Indication: COLON CANCER
     Dosage: 20 MG, UNKNOWN
     Route: 042
     Dates: start: 20160817, end: 20160817
  3. RANITIDIN [Concomitant]
     Active Substance: RANITIDINE HYDROCHLORIDE
     Indication: COLON CANCER
     Dosage: 100 MG, UNKNOWN
     Route: 042
     Dates: start: 20160817, end: 20160817
  4. ERBITUX [Suspect]
     Active Substance: CETUXIMAB
     Indication: COLON CANCER
     Dosage: 860 MG, UNKNOWN
     Route: 042
     Dates: start: 20160817, end: 20160817

REACTIONS (4)
  - Urticaria [Unknown]
  - Paraesthesia oral [Unknown]
  - Hypersensitivity [Unknown]
  - Pruritus generalised [Unknown]

NARRATIVE: CASE EVENT DATE: 20160817
